FAERS Safety Report 15894531 (Version 1)
Quarter: 2019Q1

REPORT INFORMATION
  Report Type: Report from Study
  Country: DE (occurrence: DE)
  Receive Date: 20190131
  Receipt Date: 20190131
  Transmission Date: 20190417
  Serious: Yes (Hospitalization, Other)
  Sender: FDA-Public Use
  Company Number: DE-ACCORD-103518

PATIENT
  Age: 48 Year
  Sex: Female
  Weight: 42 kg

DRUGS (28)
  1. FRESUBIN [Concomitant]
     Active Substance: AMINO ACIDS\DEXTROSE\ELECTROLYTES NOS\SOYBEAN OIL\VITAMINS
     Indication: CACHEXIA
     Dosage: 1 APPLICATION
     Route: 048
     Dates: start: 20171211
  2. AMPHO MORONAL [Concomitant]
     Active Substance: AMPHOTERICIN B
     Indication: STOMATITIS
     Dosage: 4 MILLILITER
     Route: 061
     Dates: start: 20180212
  3. AMOCLAV [Concomitant]
     Active Substance: AMOXICILLIN\CLAVULANATE POTASSIUM
     Indication: PRODUCT USED FOR UNKNOWN INDICATION
     Dosage: .5 DOSAGE FORMS
     Route: 048
     Dates: start: 20180228, end: 20180304
  4. L-THYROXIN [Concomitant]
     Active Substance: LEVOTHYROXINE SODIUM
     Dosage: 125 MICROGRAM
     Route: 048
     Dates: start: 20180301
  5. HUMANALBUMIN [Concomitant]
     Active Substance: ALBUMIN HUMAN
     Indication: CACHEXIA
     Route: 041
     Dates: start: 20180215, end: 20180219
  6. VITADRAL OEL [Concomitant]
     Indication: PROPHYLAXIS
     Dosage: 25 DROPS
     Route: 048
     Dates: start: 201711, end: 20171210
  7. BRIMICA/GENUAIR [Concomitant]
     Indication: CHRONIC OBSTRUCTIVE PULMONARY DISEASE
     Dosage: 1 PUFF
     Route: 055
     Dates: start: 20171108
  8. TAVOR [Concomitant]
     Indication: INSOMNIA
     Route: 048
  9. NAB-PACLITAXEL [Suspect]
     Active Substance: PACLITAXEL
     Indication: PRODUCT USED FOR UNKNOWN INDICATION
     Dosage: 100 MILLIGRAM/SQ. METER
     Route: 041
     Dates: start: 20180105
  10. CARBOPLATIN. [Suspect]
     Active Substance: CARBOPLATIN
     Indication: NON-SMALL CELL LUNG CANCER
     Dosage: 4.8 MG X MIN/ML
     Route: 041
  11. SALBUTAMOL [Concomitant]
     Active Substance: ALBUTEROL
     Indication: CHRONIC OBSTRUCTIVE PULMONARY DISEASE
     Dosage: 1 PUFF
     Route: 055
  12. ONDANSETRON [Concomitant]
     Active Substance: ONDANSETRON
     Indication: PROPHYLAXIS
     Route: 041
  13. L-THYROXIN [Concomitant]
     Active Substance: LEVOTHYROXINE SODIUM
     Indication: THYROIDECTOMY
     Dosage: 100 MICROGRAM
     Route: 048
     Dates: start: 20171108, end: 20171207
  14. L-THYROXIN [Concomitant]
     Active Substance: LEVOTHYROXINE SODIUM
     Dosage: 125 MICROGRAM
     Route: 048
     Dates: start: 20171208, end: 20180212
  15. NAB-PACLITAXEL [Suspect]
     Active Substance: PACLITAXEL
     Indication: PRODUCT USED FOR UNKNOWN INDICATION
     Dosage: 100 MILLIGRAM/SQ. METER
     Route: 041
     Dates: start: 20180112, end: 20180119
  16. ABRAXANE [Suspect]
     Active Substance: PACLITAXEL
     Indication: NON-SMALL CELL LUNG CANCER
     Dosage: 100 MILLIGRAM/SQ. METER FROM 12-JAN-2018 TO 19-JAN-2018
     Route: 041
     Dates: start: 20171215
  17. ATROVENT [Concomitant]
     Active Substance: IPRATROPIUM BROMIDE
     Indication: CHRONIC OBSTRUCTIVE PULMONARY DISEASE
     Dosage: 500MICROG/2ML
     Route: 065
     Dates: start: 20180212, end: 20180228
  18. VENTOLAIR [Concomitant]
     Active Substance: BECLOMETHASONE DIPROPIONATE
     Indication: PROPHYLAXIS
     Dosage: 1 PUFF
     Route: 055
     Dates: start: 201711, end: 20180210
  19. L-THYROXIN [Concomitant]
     Active Substance: LEVOTHYROXINE SODIUM
     Indication: THYROIDECTOMY
     Dosage: 125 MICROGRAM FROM 08-DEC-2017 TO 12-FEB-2018 (1 DAYS)
     Route: 048
     Dates: start: 20180213, end: 20180228
  20. PANTOZOL [Concomitant]
     Active Substance: PANTOPRAZOLE SODIUM
     Indication: PROPHYLAXIS
     Dosage: 40 MILLIGRAM
     Route: 048
  21. MSI [Concomitant]
     Active Substance: MORPHINE SULFATE
     Indication: TUMOUR PAIN
     Route: 058
  22. DEXAMETHASONE. [Concomitant]
     Active Substance: DEXAMETHASONE
     Dosage: 24 MILLIGRAM
     Route: 048
     Dates: start: 20180202
  23. NOVAMINSULFON [Concomitant]
     Active Substance: METAMIZOLE
     Indication: TUMOUR PAIN
     Dosage: 120 DROPS
     Route: 048
     Dates: start: 2017
  24. PANTHENOL [Concomitant]
     Active Substance: PANTHENOL
     Indication: PROPHYLAXIS
     Dosage: 1 TAB
     Route: 048
     Dates: start: 201711, end: 20171210
  25. NYSTADERM [Concomitant]
     Indication: PROPHYLAXIS
     Dosage: 1 APPLICATION
     Route: 048
     Dates: start: 201711, end: 20171214
  26. NATRIUM FLUOR [Concomitant]
     Indication: PROPHYLAXIS
     Route: 041
  27. DEXAMETHASONE. [Concomitant]
     Active Substance: DEXAMETHASONE
     Indication: PROPHYLAXIS
     Route: 041
     Dates: start: 20171208, end: 20180105
  28. NAB-PACLITAXEL [Suspect]
     Active Substance: PACLITAXEL
     Indication: NON-SMALL CELL LUNG CANCER
     Dosage: 100 MILLIGRAM/SQ. METER
     Route: 041
     Dates: start: 20171208, end: 20180119

REACTIONS (4)
  - Leukopenia [Recovered/Resolved]
  - Pneumothorax [Recovered/Resolved]
  - Anaemia [Recovered/Resolved]
  - Nausea [Not Recovered/Not Resolved]

NARRATIVE: CASE EVENT DATE: 20171209
